FAERS Safety Report 17734768 (Version 1)
Quarter: 2020Q2

REPORT INFORMATION
  Report Type: Spontaneous
  Country: FR (occurrence: FR)
  Receive Date: 20200501
  Receipt Date: 20200501
  Transmission Date: 20200714
  Serious: Yes (Life-Threatening, Hospitalization)
  Sender: FDA-Public Use
  Company Number: FR-MYLANLABS-2020M1042669

PATIENT
  Age: 69 Year
  Sex: Female

DRUGS (9)
  1. INFLECTRA                          /01445601/ [Concomitant]
     Active Substance: INFLIXIMAB
     Dosage: 250 MILLIGRAM, EVERY 8 WEEK
  2. PARIET [Concomitant]
     Active Substance: RABEPRAZOLE SODIUM
     Dosage: UNK
  3. IMETH                              /00113801/ [Concomitant]
     Active Substance: METHOTREXATE
     Dosage: 10 MILLIGRAM, QW
     Route: 065
  4. TEMERIT [Concomitant]
     Active Substance: NEBIVOLOL
     Dosage: UNK
  5. PROPOFOL. [Suspect]
     Active Substance: PROPOFOL
     Indication: GENERAL ANAESTHESIA
     Dosage: UNK
     Route: 042
     Dates: start: 20190820, end: 20190820
  6. ROCURONIUM [Suspect]
     Active Substance: ROCURONIUM BROMIDE
     Indication: GENERAL ANAESTHESIA
     Dosage: UNK
     Route: 042
     Dates: start: 20190820, end: 20190820
  7. DEXDOR [Suspect]
     Active Substance: DEXMEDETOMIDINE HYDROCHLORIDE
     Indication: ANAESTHESIA
     Dosage: UNK
     Route: 042
     Dates: start: 20190820, end: 20190820
  8. LIDOCAINE. [Suspect]
     Active Substance: LIDOCAINE
     Indication: ANAESTHESIA
     Dosage: UNK
     Route: 042
     Dates: start: 20190820, end: 20190820
  9. ACIDE FOLIQUE [Concomitant]
     Active Substance: FOLIC ACID
     Dosage: UNK

REACTIONS (2)
  - Stress cardiomyopathy [Recovered/Resolved]
  - Anaphylactic reaction [Recovered/Resolved]

NARRATIVE: CASE EVENT DATE: 20190820
